FAERS Safety Report 6650108-5 (Version None)
Quarter: 2010Q1

REPORT INFORMATION
  Report Type: 
  Country: None (occurrence: None)
  Receive Date: 20100325
  Receipt Date: 20100319
  Transmission Date: 20100710
  Serious: Yes (Other)
  Sender: FDA-Public Use
  Company Number: BR-SANOFI-AVENTIS-2010SA016369

PATIENT
  Age: 72 Year
  Sex: Male
  Weight: 62 kg

DRUGS (6)
  1. LANTUS [Suspect]
     Indication: TYPE 2 DIABETES MELLITUS
     Route: 058
     Dates: start: 20060401, end: 20070101
  2. LANTUS [Suspect]
     Route: 058
     Dates: start: 20070101
  3. OPTIPEN [Suspect]
     Dates: start: 20060401
  4. AUTOPEN 24 [Suspect]
  5. PURAN T4 [Suspect]
     Indication: THYROID DISORDER
     Route: 048
  6. BENERVA [Concomitant]
     Indication: ILL-DEFINED DISORDER
     Route: 048

REACTIONS (4)
  - GASTROINTESTINAL CARCINOMA [None]
  - HYPERGLYCAEMIA [None]
  - INTESTINAL POLYP [None]
  - WEIGHT DECREASED [None]
